FAERS Safety Report 4695874-3 (Version None)
Quarter: 2005Q2

REPORT INFORMATION
  Report Type: 
  Country: None (occurrence: None)
  Receive Date: 20050608
  Receipt Date: 20040518
  Transmission Date: 20051028
  Serious: Yes (Other)
  Sender: FDA-Public Use
  Company Number: 368267

PATIENT
  Sex: Female
  Weight: 3 kg

DRUGS (2)
  1. ACCUTANE [Suspect]
     Dosage: 20 MG ORAL
     Route: 048
     Dates: start: 20040314, end: 20040417
  2. CLEOCIN [Concomitant]

REACTIONS (2)
  - NO ADVERSE EFFECT [None]
  - NORMAL NEWBORN [None]
